FAERS Safety Report 21670265 (Version 1)
Quarter: 2022Q4

REPORT INFORMATION
  Report Type: Spontaneous
  Country: ES (occurrence: ES)
  Receive Date: 20221201
  Receipt Date: 20221201
  Transmission Date: 20230113
  Serious: Yes (Other)
  Sender: FDA-Public Use
  Company Number: ES-BIOGEN-2022BI01172111

PATIENT
  Age: 40 Year
  Sex: Female

DRUGS (1)
  1. TYSABRI [Suspect]
     Active Substance: NATALIZUMAB
     Indication: Relapsing-remitting multiple sclerosis
     Route: 050
     Dates: start: 2011

REACTIONS (19)
  - Epilepsy [Unknown]
  - Myelitis [Unknown]
  - Fibromyalgia [Unknown]
  - Migraine [Unknown]
  - Psoriasis [Unknown]
  - Multiple sclerosis pseudo relapse [Unknown]
  - Somatic symptom disorder [Unknown]
  - Pain [Unknown]
  - Prescribed underdose [Unknown]
  - Prosopagnosia [Unknown]
  - Paresis [Unknown]
  - Photophobia [Unknown]
  - Visual impairment [Unknown]
  - Tremor [Unknown]
  - Muscle spasms [Unknown]
  - Balance disorder [Unknown]
  - Allodynia [Unknown]
  - Syncope [Unknown]
  - Mental impairment [Unknown]

NARRATIVE: CASE EVENT DATE: 20111201
